FAERS Safety Report 16271041 (Version 1)
Quarter: 2019Q2

REPORT INFORMATION
  Report Type: Spontaneous
  Country: SK (occurrence: SK)
  Receive Date: 20190503
  Receipt Date: 20190503
  Transmission Date: 20190711
  Serious: Yes (Hospitalization, Other)
  Sender: FDA-Public Use
  Company Number: SK-B.I. PHARMACEUTICALS,INC./RIDGEFIELD-2019-BI-019322

PATIENT
  Age: 64 Year
  Sex: Male

DRUGS (1)
  1. PRADAXA [Suspect]
     Active Substance: DABIGATRAN ETEXILATE MESYLATE
     Indication: ATRIAL FIBRILLATION
     Dosage: LAST DOSE AT 8.00 P.M.
     Route: 048

REACTIONS (4)
  - Dysarthria [Unknown]
  - Hemiparesis [Unknown]
  - Cerebrovascular accident [Unknown]
  - Hemianopia [Unknown]
